FAERS Safety Report 26169160 (Version 1)
Quarter: 2025Q4

REPORT INFORMATION
  Report Type: Spontaneous
  Country: US (occurrence: US)
  Receive Date: 20251217
  Receipt Date: 20251217
  Transmission Date: 20260118
  Serious: Yes (Other)
  Sender: MYLAN
  Company Number: US-MYLANLABS-2025M1107323

PATIENT
  Age: 71 Year
  Sex: Male

DRUGS (8)
  1. AMIODARONE [Interacting]
     Active Substance: AMIODARONE
     Indication: Supraventricular tachycardia
     Dosage: UNK
  2. AMIODARONE [Interacting]
     Active Substance: AMIODARONE
     Dosage: UNK
     Route: 065
  3. AMIODARONE [Interacting]
     Active Substance: AMIODARONE
     Dosage: UNK
     Route: 065
  4. AMIODARONE [Interacting]
     Active Substance: AMIODARONE
     Dosage: UNK
  5. ISAVUCONAZOLE [Interacting]
     Active Substance: ISAVUCONAZOLE
     Indication: Antifungal prophylaxis
     Dosage: UNK
  6. ISAVUCONAZOLE [Interacting]
     Active Substance: ISAVUCONAZOLE
     Dosage: UNK
     Route: 065
  7. ISAVUCONAZOLE [Interacting]
     Active Substance: ISAVUCONAZOLE
     Dosage: UNK
     Route: 065
  8. ISAVUCONAZOLE [Interacting]
     Active Substance: ISAVUCONAZOLE
     Dosage: UNK

REACTIONS (2)
  - Electrocardiogram QT prolonged [Unknown]
  - Drug interaction [Unknown]
